FAERS Safety Report 4595367-8 (Version None)
Quarter: 2005Q1

REPORT INFORMATION
  Report Type: 
  Country: None (occurrence: None)
  Receive Date: 20050224
  Receipt Date: 20050208
  Transmission Date: 20050727
  Serious: Yes (Hospitalization)
  Sender: FDA-Public Use
  Company Number: USA050188905

PATIENT
  Age: 51 Year
  Sex: Female

DRUGS (5)
  1. ALIMTA [Suspect]
     Indication: NON-SMALL CELL LUNG CANCER
     Dosage: 845 MG
     Dates: start: 20050111
  2. FOLIC ACID [Concomitant]
  3. VITAMIN B-12 [Concomitant]
  4. DEXAMETHASONE [Concomitant]
  5. COUMADIN [Concomitant]

REACTIONS (6)
  - ARTHRALGIA [None]
  - NAUSEA [None]
  - RETCHING [None]
  - SUBCUTANEOUS EMPHYSEMA [None]
  - SWELLING [None]
  - VOMITING [None]
